FAERS Safety Report 5316988-0 (Version None)
Quarter: 2007Q2

REPORT INFORMATION
  Report Type: 
  Country: None (occurrence: None)
  Receive Date: 20070504
  Receipt Date: 20070424
  Transmission Date: 20071010
  Serious: Yes (Other)
  Sender: FDA-Public Use
  Company Number: US-PFIZER INC-2007034683

PATIENT
  Sex: Female

DRUGS (2)
  1. LIPITOR [Suspect]
     Dosage: DAILY DOSE:10MG
  2. LIPITOR [Suspect]
     Dosage: DAILY DOSE:5MG

REACTIONS (2)
  - HEPATIC ENZYME INCREASED [None]
  - PARALYSIS [None]
